FAERS Safety Report 15384247 (Version 4)
Quarter: 2020Q4

REPORT INFORMATION
  Report Type: Report from Study
  Country: FR (occurrence: FR)
  Receive Date: 20180914
  Receipt Date: 20201116
  Transmission Date: 20210113
  Serious: Yes (Hospitalization)
  Sender: FDA-Public Use
  Company Number: FR-BRISTOL-MYERS SQUIBB COMPANY-BMS-2018-077486

PATIENT
  Age: 75 Year
  Sex: Male

DRUGS (2)
  1. NIVOLUMAB [Suspect]
     Active Substance: NIVOLUMAB
     Indication: NON-SMALL CELL LUNG CANCER
     Dosage: 240 MG EVERY 2 MONTH/240 MG EVERY 2 WEEKS
     Route: 042
     Dates: start: 20180323, end: 20180802
  2. IPILIMUMAB [Suspect]
     Active Substance: IPILIMUMAB
     Indication: NON-SMALL CELL LUNG CANCER
     Dosage: UNK UNK, Q6WK
     Route: 042
     Dates: start: 20180323, end: 20180802

REACTIONS (2)
  - Migraine [Recovered/Resolved]
  - Ataxia [Recovered/Resolved]

NARRATIVE: CASE EVENT DATE: 20180802
